FAERS Safety Report 8168947-0 (Version None)
Quarter: 2012Q1

REPORT INFORMATION
  Report Type: 
  Country: None (occurrence: None)
  Receive Date: 20120227
  Receipt Date: 20120222
  Transmission Date: 20120608
  Serious: Yes (Hospitalization, Other)
  Sender: FDA-Public Use
  Company Number: US-AMGEN-USASP2011061819

PATIENT
  Age: 70 Year
  Sex: Male

DRUGS (26)
  1. PLAVIX [Concomitant]
     Dosage: 75 MG, UNK
  2. LASIX [Concomitant]
     Dosage: 40 MG, BID
     Route: 048
  3. CIMZIA [Concomitant]
     Dosage: UNK
  4. ASPIRIN [Concomitant]
     Dosage: 81 MG, UNK
  5. LISINOPRIL [Concomitant]
     Dosage: 20 MG, BID
  6. INSULIN [Concomitant]
     Indication: TYPE 1 DIABETES MELLITUS
  7. AMLODIPINE [Concomitant]
     Dosage: 5 MG, UNK
  8. LOSARTAN POTASSIUM [Concomitant]
     Dosage: 100 MG, UNK
  9. FENOFIBRATE [Concomitant]
     Dosage: 135 MG, UNK
  10. ALENDRONATE SODIUM [Concomitant]
     Dosage: 70 MG, QWK
  11. ENBREL [Suspect]
     Dosage: 50 MG, QWK
     Dates: start: 20110901
  12. METHOTREXATE [Concomitant]
     Dosage: UNK
  13. NEXIUM [Concomitant]
     Dosage: 40 MG, UNK
  14. METOPROLOL [Concomitant]
     Dosage: 50 MG, BID
  15. VITAMIN D [Concomitant]
     Dosage: 1000 UNIT, UNK
  16. FEOSOL [Concomitant]
     Dosage: UNK
  17. LYRICA [Concomitant]
     Dosage: 100 MG, UNK
  18. ENBREL [Suspect]
     Indication: RHEUMATOID ARTHRITIS
     Dosage: 50 MG, QWK
     Dates: start: 20111014
  19. PREDNISONE [Concomitant]
     Dosage: 2.5 MG, UNK
  20. PREDNISONE [Concomitant]
     Dosage: 12.5 MG, UNK
  21. LASIX [Concomitant]
     Dosage: 20 MG, Q12H
     Route: 042
  22. ASCORBIC ACID [Concomitant]
     Dosage: 500 MG, UNK
  23. MULTIVITAMIN                       /00097801/ [Concomitant]
     Dosage: UNK
  24. PREDNISONE [Concomitant]
     Dosage: 5 MG, UNK
  25. ZETIA [Concomitant]
     Dosage: 10 MG, UNK
  26. FOLIC ACID [Concomitant]
     Dosage: 1 MG, BID

REACTIONS (25)
  - CORONARY ARTERY DISEASE [None]
  - DECREASED APPETITE [None]
  - WEIGHT DECREASED [None]
  - RHINORRHOEA [None]
  - ARTHRALGIA [None]
  - FUNGAL SKIN INFECTION [None]
  - OROPHARYNGEAL PAIN [None]
  - DIARRHOEA [None]
  - ANGINA PECTORIS [None]
  - AORTIC VALVE DISEASE MIXED [None]
  - DRUG INEFFECTIVE [None]
  - BRONCHITIS [None]
  - OXYGEN SATURATION DECREASED [None]
  - CARDIAC FAILURE CONGESTIVE [None]
  - PRURITUS [None]
  - AORTIC STENOSIS [None]
  - SLEEP APNOEA SYNDROME [None]
  - DIABETIC NEUROPATHY [None]
  - BLISTER [None]
  - SKIN DISCOLOURATION [None]
  - JOINT RANGE OF MOTION DECREASED [None]
  - MUSCULOSKELETAL PAIN [None]
  - FATIGUE [None]
  - RASH PRURITIC [None]
  - RASH GENERALISED [None]
